FAERS Safety Report 5413169-7 (Version None)
Quarter: 2007Q3

REPORT INFORMATION
  Report Type: 
  Country: None (occurrence: None)
  Receive Date: 20070810
  Receipt Date: 20070727
  Transmission Date: 20080115
  Serious: Yes (Hospitalization)
  Sender: FDA-Public Use
  Company Number: 2007001390

PATIENT
  Age: 76 Year
  Sex: Male
  Weight: 194.3 kg

DRUGS (8)
  1. ERLOTINIB/UNBLINDED [Suspect]
     Indication: NON-SMALL CELL LUNG CANCER
     Dosage: 150 (UNKNOWN UNITS) (QD), ORAL
     Route: 048
     Dates: start: 20070709, end: 20070720
  2. BEVACIZUMAB (INJECTION FOR INFUSION) [Suspect]
     Indication: NON-SMALL CELL LUNG CANCER
     Dosage: 1590 (UNK UNITS) (Q3W), INTRAVENOUS
     Route: 042
     Dates: start: 20070402
  3. ASPIRIN [Concomitant]
  4. PLAVIX [Concomitant]
  5. METOPROLOL TARTRATE [Concomitant]
  6. GLYBURIDE [Concomitant]
  7. ZOCOR [Concomitant]
  8. CLEOCIN CREAM (CLINDAMYCIN PHOSPHATE) [Concomitant]

REACTIONS (6)
  - GASTROENTERITIS [None]
  - HAEMATOCRIT DECREASED [None]
  - HAEMOGLOBIN DECREASED [None]
  - PLATELET COUNT DECREASED [None]
  - RASH [None]
  - WHITE BLOOD CELL COUNT INCREASED [None]
